FAERS Safety Report 9765207 (Version 1)
Quarter: 2013Q4

REPORT INFORMATION
  Report Type: Spontaneous
  Country: US (occurrence: US)
  Receive Date: 20131217
  Receipt Date: 20131217
  Transmission Date: 20140711
  Serious: No
  Sender: FDA-Public Use
  Company Number: US-GLAXOSMITHKLINE-A1002278A

PATIENT
  Age: 65 Year
  Sex: Male
  Weight: 88 kg

DRUGS (2)
  1. VOTRIENT [Suspect]
     Indication: PRODUCT USED FOR UNKNOWN INDICATION
     Dosage: 800MG PER DAY
     Route: 048
     Dates: start: 201203
  2. COUMADIN [Concomitant]
     Route: 048

REACTIONS (6)
  - Diarrhoea [Unknown]
  - Fatigue [Unknown]
  - Decreased appetite [Unknown]
  - Alopecia [Unknown]
  - Nausea [Unknown]
  - Vomiting [Unknown]
